FAERS Safety Report 4582869-3 (Version None)
Quarter: 2005Q1

REPORT INFORMATION
  Report Type: 
  Country: None (occurrence: None)
  Receive Date: 20050215
  Receipt Date: 20041222
  Transmission Date: 20050727
  Serious: Yes (Hospitalization)
  Sender: FDA-Public Use
  Company Number: PHBS2004JP17262

PATIENT
  Age: 11 Year
  Sex: Male
  Weight: 25 kg

DRUGS (6)
  1. CYLOCIDE [Suspect]
     Indication: ACUTE LYMPHOCYTIC LEUKAEMIA
     Dosage: 4000 MG/M2/DAY
     Route: 042
     Dates: start: 20010816, end: 20010818
  2. L-PAM [Suspect]
     Indication: ACUTE LYMPHOCYTIC LEUKAEMIA
     Dosage: 70 MG/M2/DAY
     Route: 042
     Dates: start: 20010819, end: 20010820
  3. METHOTREXATE [Suspect]
     Indication: PROPHYLAXIS AGAINST TRANSPLANT REJECTION
     Dosage: 15 MG/M2, 10 MG/M2, 10 MG/M2, 10 MG/M2
     Route: 042
     Dates: start: 20010823
  4. RADIOTHERAPY [Suspect]
     Dosage: 4 GY/DAY
     Dates: start: 20010813, end: 20010815
  5. GLEEVEC [Suspect]
     Indication: ACUTE LYMPHOCYTIC LEUKAEMIA
     Dosage: 300 MG/DAY
     Route: 048
     Dates: start: 20041210
  6. GLEEVEC [Suspect]
     Dosage: 300 MG/DAY
     Route: 048
     Dates: start: 20010717, end: 20010820

REACTIONS (4)
  - BONE MARROW TRANSPLANT [None]
  - COUGH [None]
  - GRAFT VERSUS HOST DISEASE [None]
  - INTERSTITIAL LUNG DISEASE [None]
